FAERS Safety Report 23123394 (Version 2)
Quarter: 2023Q4

REPORT INFORMATION
  Report Type: Spontaneous
  Country: US (occurrence: US)
  Receive Date: 20231030
  Receipt Date: 20231123
  Transmission Date: 20240110
  Serious: No
  Sender: FDA-Public Use
  Company Number: US-LEO Pharma-364509

PATIENT
  Age: 25 Year
  Sex: Female

DRUGS (2)
  1. ADBRY [Suspect]
     Active Substance: TRALOKINUMAB-LDRM
     Indication: Dermatitis atopic
     Dosage: INJECT 4 SYRINGES UNDER THE SKIN ON DAY 1, THEN START MAINTENANCE DOSING AS DIRECTED ON DAY 15. TREA
     Route: 058
  2. ADBRY [Suspect]
     Active Substance: TRALOKINUMAB-LDRM
     Indication: Dermatitis atopic
     Dosage: 4 SYRINGES UNDER THE SKIN ON DAY 1
     Route: 058
     Dates: start: 202310

REACTIONS (3)
  - Anxiety [Recovering/Resolving]
  - Decreased appetite [Recovering/Resolving]
  - Mood swings [Recovered/Resolved]

NARRATIVE: CASE EVENT DATE: 20231018
